FAERS Safety Report 12369471 (Version 1)
Quarter: 2016Q2

REPORT INFORMATION
  Report Type: Spontaneous
  Country: US (occurrence: None)
  Receive Date: 20160513
  Receipt Date: 20160513
  Transmission Date: 20160815
  Serious: Yes (Disabling)
  Sender: FDA-Public Use
  Company Number: None

PATIENT
  Age: 48 Year
  Sex: Female
  Weight: 63.5 kg

DRUGS (1)
  1. TESTOSTERONE PELLETS [Suspect]
     Active Substance: TESTOSTERONE
     Indication: BLOOD TESTOSTERONE DECREASED
     Dosage: GIVEN INTO/UNDER THE SKIN
     Dates: start: 20160426

REACTIONS (3)
  - Musculoskeletal disorder [None]
  - Back pain [None]
  - Dysstasia [None]

NARRATIVE: CASE EVENT DATE: 20160506
